FAERS Safety Report 7635540-5 (Version None)
Quarter: 2011Q3

REPORT INFORMATION
  Report Type: 
  Country: None (occurrence: None)
  Receive Date: 20110726
  Receipt Date: 20110718
  Transmission Date: 20111222
  Serious: Yes (Hospitalization, Other)
  Sender: FDA-Public Use
  Company Number: US-ASTRAZENECA-2011SE43040

PATIENT
  Age: 50 Year
  Sex: Female
  Weight: 85.3 kg

DRUGS (17)
  1. PREDNISOLONE [Concomitant]
     Dates: start: 20080101
  2. ABILIFY [Concomitant]
     Route: 048
     Dates: start: 20080101
  3. ADALAT [Concomitant]
     Route: 048
     Dates: start: 20080101
  4. SEROQUEL [Suspect]
     Route: 048
  5. ZANTAC [Concomitant]
     Route: 048
     Dates: start: 20080101
  6. RISPERIDONE [Concomitant]
     Route: 048
     Dates: start: 20080101
  7. CYMBALTA [Concomitant]
     Route: 048
     Dates: start: 20080101
  8. LAMICTAL [Concomitant]
     Route: 048
     Dates: start: 20080101
  9. MOTRIN [Concomitant]
     Route: 048
     Dates: start: 20080101
  10. TENEX [Concomitant]
     Route: 048
     Dates: start: 20080101
  11. XANAX [Concomitant]
     Route: 048
     Dates: start: 20080101
  12. HYDROCHLOROTHIAZIDE [Concomitant]
     Route: 048
     Dates: start: 20080101
  13. TRAZODONE HCL [Concomitant]
     Route: 048
     Dates: start: 20080101
  14. LASIX [Concomitant]
     Route: 048
     Dates: start: 20080101
  15. POTASSIUM CHLORIDE [Concomitant]
     Route: 048
     Dates: start: 20080101
  16. LORTAB [Concomitant]
     Route: 048
     Dates: start: 20080101
  17. MUCINEX [Concomitant]
     Route: 048
     Dates: start: 20080101

REACTIONS (14)
  - GALLBLADDER DISORDER [None]
  - BRONCHITIS [None]
  - FOLLICULITIS [None]
  - CHRONIC OBSTRUCTIVE PULMONARY DISEASE [None]
  - ABDOMINAL DISTENSION [None]
  - OEDEMA PERIPHERAL [None]
  - HYPERTENSION [None]
  - ARTHRALGIA [None]
  - TYPE 2 DIABETES MELLITUS [None]
  - HEPATIC ENZYME INCREASED [None]
  - HYPOTENSION [None]
  - URINARY INCONTINENCE [None]
  - DIARRHOEA [None]
  - DIABETES MELLITUS INADEQUATE CONTROL [None]
